FAERS Safety Report 5563395-1 (Version None)
Quarter: 2007Q4

REPORT INFORMATION
  Report Type: 
  Country: None (occurrence: None)
  Receive Date: 20071217
  Receipt Date: 20070723
  Transmission Date: 20080405
  Serious: No
  Sender: FDA-Public Use
  Company Number: US-ASTRAZENECA-2007UW02556

PATIENT
  Age: 57 Year
  Sex: Female
  Weight: 54.4 kg

DRUGS (9)
  1. CRESTOR [Suspect]
     Indication: BLOOD CHOLESTEROL INCREASED
     Route: 048
     Dates: start: 20070201
  2. TOPROL-XL [Concomitant]
  3. NORVASC [Concomitant]
  4. HYDROCHLOROTHIAZIDE [Concomitant]
  5. ATIVAN [Concomitant]
  6. MIRALAX [Concomitant]
  7. ACTONEL [Concomitant]
  8. ATIVAN [Concomitant]
  9. PRILOSEC [Concomitant]

REACTIONS (5)
  - ARTHRALGIA [None]
  - HOT FLUSH [None]
  - NIGHT SWEATS [None]
  - PAIN [None]
  - PHARYNGOLARYNGEAL PAIN [None]
